FAERS Safety Report 6885853-X (Version None)
Quarter: 2010Q3

REPORT INFORMATION
  Report Type: 
  Country: None (occurrence: None)
  Receive Date: 20100729
  Receipt Date: 20090204
  Transmission Date: 20110219
  Serious: No
  Sender: FDA-Public Use
  Company Number: US-PFIZER INC-2009165497

PATIENT
  Sex: Male
  Weight: 73.469 kg

DRUGS (3)
  1. CELEBREX [Suspect]
     Indication: ARTHRITIS
     Dates: start: 20090204
  2. CHOLESTEROL [Concomitant]
     Dosage: UNK
  3. ANTIINFLAMMATORY/ANTIRHEUMATIC PRODUCTS [Concomitant]
     Dosage: UNK

REACTIONS (1)
  - ABDOMINAL DISCOMFORT [None]
